FAERS Safety Report 6525354-1 (Version None)
Quarter: 2010Q1

REPORT INFORMATION
  Report Type: 
  Country: None (occurrence: None)
  Receive Date: 20100104
  Receipt Date: 20091222
  Transmission Date: 20100710
  Serious: Yes (Other)
  Sender: FDA-Public Use
  Company Number: US-BAYER-200943475NA

PATIENT
  Age: 27 Year
  Sex: Female
  Weight: 62 kg

DRUGS (1)
  1. ULTRAVIST 370 [Suspect]
     Indication: COMPUTERISED TOMOGRAM THORAX
     Dosage: TOTAL DAILY DOSE: 130 ML  UNIT DOSE: 150 ML
     Route: 042
     Dates: start: 20091221, end: 20091221

REACTIONS (6)
  - BLOOD PRESSURE DECREASED [None]
  - HEART RATE DECREASED [None]
  - HYPERHIDROSIS [None]
  - HYPOAESTHESIA FACIAL [None]
  - PARAESTHESIA [None]
  - VISUAL ACUITY REDUCED [None]
